FAERS Safety Report 9255852 (Version 2)
Quarter: 2013Q2

REPORT INFORMATION
  Report Type: Spontaneous
  Country: DE (occurrence: DE)
  Receive Date: 20130425
  Receipt Date: 20130513
  Transmission Date: 20140414
  Serious: Yes (Other)
  Sender: FDA-Public Use
  Company Number: DE-GLAXOSMITHKLINE-D0079589A

PATIENT
  Age: 29 Year
  Sex: Female

DRUGS (3)
  1. ALLI [Suspect]
     Route: 048
     Dates: start: 20130402, end: 20130403
  2. LAMOTRIGINE [Suspect]
     Dosage: 400MG PER DAY
     Route: 048
  3. LEVETIRACETAM [Concomitant]
     Dosage: 2000MG PER DAY
     Route: 048

REACTIONS (6)
  - Convulsion [Recovered/Resolved]
  - Loss of consciousness [Recovered/Resolved]
  - Disorientation [Recovered/Resolved]
  - Somnolence [Recovered/Resolved]
  - Drug interaction [Unknown]
  - Drug ineffective [Unknown]
